FAERS Safety Report 16719022 (Version 1)
Quarter: 2019Q3

REPORT INFORMATION
  Report Type: Report from Study
  Country: US (occurrence: US)
  Receive Date: 20190820
  Receipt Date: 20190820
  Transmission Date: 20191005
  Serious: Yes (Hospitalization, Other)
  Sender: FDA-Public Use
  Company Number: US-AUROBINDO-AUR-APL-2019-053501

PATIENT

DRUGS (2)
  1. CYCLOBENZAPRINE. [Suspect]
     Active Substance: CYCLOBENZAPRINE
     Indication: ABDOMINAL PAIN
     Dosage: UNK
     Route: 065
  2. OXYCODONE [Suspect]
     Active Substance: OXYCODONE
     Indication: ABDOMINAL PAIN
     Dosage: UNK
     Route: 065

REACTIONS (9)
  - Renal tubular necrosis [Unknown]
  - Rhabdomyolysis [Unknown]
  - Hypoxia [Unknown]
  - Unresponsive to stimuli [Recovered/Resolved]
  - Shock [Unknown]
  - Cardiomyopathy [Unknown]
  - Ischaemic hepatitis [Unknown]
  - Respiratory depression [Unknown]
  - Left ventricular dysfunction [Unknown]
